FAERS Safety Report 13802211 (Version 1)
Quarter: 2017Q3

REPORT INFORMATION
  Report Type: Spontaneous
  Country: US (occurrence: US)
  Receive Date: 20170727
  Receipt Date: 20170727
  Transmission Date: 20171127
  Serious: Yes (Hospitalization)
  Sender: FDA-Public Use
  Company Number: None

PATIENT
  Age: 68 Year
  Sex: Male
  Weight: 125.1 kg

DRUGS (21)
  1. CLONAZEPAM. [Concomitant]
     Active Substance: CLONAZEPAM
  2. ALBUTEROL SULFATE. [Concomitant]
     Active Substance: ALBUTEROL SULFATE
  3. FLUTICOSONE PROPRIANATE [Concomitant]
  4. NORCO WITH ACETOMINOPHEN [Concomitant]
  5. DUCOSATE SODIUM [Concomitant]
  6. ALLEGRA [Concomitant]
     Active Substance: FEXOFENADINE HYDROCHLORIDE
  7. SYNVISC [Concomitant]
     Active Substance: HYALURONATE SODIUM
  8. FLEXERIL [Concomitant]
     Active Substance: CYCLOBENZAPRINE HYDROCHLORIDE
  9. LIPITOR [Concomitant]
     Active Substance: ATORVASTATIN CALCIUM
  10. HYDROCHLOROTHIAZIDE. [Concomitant]
     Active Substance: HYDROCHLOROTHIAZIDE
  11. SONICARE FLUORIDEX [Concomitant]
  12. HUMALOG [Concomitant]
     Active Substance: INSULIN LISPRO
  13. ZOFRAN [Concomitant]
     Active Substance: ONDANSETRON HYDROCHLORIDE
  14. SODIUM HYALURONATE [Concomitant]
     Active Substance: HYALURONATE SODIUM
  15. ALLOPURINOL. [Concomitant]
     Active Substance: ALLOPURINOL
  16. BUSPIRONE [Concomitant]
     Active Substance: BUSPIRONE HYDROCHLORIDE
  17. CALCIUM WITH VIT D [Concomitant]
  18. VITAMIN D3 [Concomitant]
     Active Substance: CHOLECALCIFEROL
  19. BREO ELLIPTA [Concomitant]
     Active Substance: FLUTICASONE FUROATE\VILANTEROL TRIFENATATE
  20. SALONPAS PAIN RELIEF [Concomitant]
     Active Substance: MENTHOL\METHYL SALICYLATE
  21. FOSINOPRIL [Suspect]
     Active Substance: FOSINOPRIL
     Indication: HYPERTENSION
     Route: 048
     Dates: start: 20070718, end: 20170726

REACTIONS (4)
  - Adverse drug reaction [None]
  - Drug ineffective [None]
  - Asthenia [None]
  - Product label confusion [None]

NARRATIVE: CASE EVENT DATE: 20170721
